FAERS Safety Report 11483457 (Version 2)
Quarter: 2015Q3

REPORT INFORMATION
  Report Type: Spontaneous
  Country: US (occurrence: US)
  Receive Date: 20150903
  Receipt Date: 20150903
  Transmission Date: 20151125
  Serious: Yes (Other)
  Sender: FDA-Public Use
  Company Number: US-ELI_LILLY_AND_COMPANY-US201205000474

PATIENT
  Sex: Female

DRUGS (1)
  1. CYMBALTA [Suspect]
     Active Substance: DULOXETINE HYDROCHLORIDE
     Indication: INTERVERTEBRAL DISC PROTRUSION
     Dosage: UNK

REACTIONS (9)
  - Anger [Unknown]
  - Headache [Unknown]
  - Tremor [Unknown]
  - Amnesia [Unknown]
  - Off label use [Recovered/Resolved]
  - Suicidal behaviour [Unknown]
  - Confusional state [Unknown]
  - Hot flush [Unknown]
  - Disturbance in attention [Unknown]
